FAERS Safety Report 21533813 (Version 1)
Quarter: 2022Q4

REPORT INFORMATION
  Report Type: Spontaneous
  Country: US (occurrence: None)
  Receive Date: 20221031
  Receipt Date: 20221031
  Transmission Date: 20230113
  Serious: No
  Sender: FDA-Public Use
  Company Number: None

PATIENT
  Age: 71 Year
  Sex: Female
  Weight: 51.98 kg

DRUGS (10)
  1. IBRANCE [Suspect]
     Active Substance: PALBOCICLIB
     Indication: Breast cancer female
     Dosage: OTHER FREQUENCY : 3W, 1W OFF;?
     Route: 048
  2. BUFFERED VITAMIN C [Concomitant]
  3. CALCIUM MAGNESIUM AND ZINC [Concomitant]
  4. CENTRUM SILVER 50+WOMEN [Concomitant]
  5. CURCUMIN POWDER [Concomitant]
  6. VITAMIN E [Concomitant]
     Active Substance: .ALPHA.-TOCOPHEROL
  7. VITAMIN D3 [Concomitant]
     Active Substance: CHOLECALCIFEROL
  8. OMEPRAZOLE [Concomitant]
     Active Substance: OMEPRAZOLE
  9. VITAMIN A [Concomitant]
     Active Substance: VITAMIN A
  10. VITAMIN B [Concomitant]
     Active Substance: VITAMIN B

REACTIONS (1)
  - Disease progression [None]
